FAERS Safety Report 15023124 (Version 2)
Quarter: 2018Q2

REPORT INFORMATION
  Report Type: Spontaneous
  Country: DE (occurrence: DE)
  Receive Date: 20180618
  Receipt Date: 20180618
  Transmission Date: 20180711
  Serious: Yes (Hospitalization, Other)
  Sender: FDA-Public Use
  Company Number: PHHY2018DE024066

PATIENT
  Sex: Male

DRUGS (24)
  1. PREDNISOLON [Suspect]
     Active Substance: PREDNISOLONE
     Dosage: 100 MG, CYCLIC (CYCLE 4, 5 DAYS OF CYCLE)
     Route: 048
     Dates: start: 20140613, end: 20140617
  2. DOXORUBICIN [Suspect]
     Active Substance: DOXORUBICIN
     Indication: B-CELL LYMPHOMA
     Dosage: UNK UNK, CYCLICAL (CYCLE 1)
     Route: 042
  3. ACICLOVIR [Concomitant]
     Active Substance: ACYCLOVIR
     Indication: PROPHYLAXIS
     Dosage: 1600 MG, QD (400 MG, QID)
     Route: 048
     Dates: start: 201404
  4. DOXORUBICIN [Suspect]
     Active Substance: DOXORUBICIN
     Dosage: 96 MG, Q2W (CYCLE 4)
     Route: 042
     Dates: start: 20140613, end: 20140613
  5. COLECALCIFEROL [Concomitant]
     Active Substance: CHOLECALCIFEROL
     Indication: PROPHYLAXIS
     Dosage: 5 MG, QWK
     Route: 048
     Dates: start: 201404
  6. ENOXAPARIN SODIUM. [Concomitant]
     Active Substance: ENOXAPARIN SODIUM
     Indication: PROPHYLAXIS
     Dosage: 1 ML, QD
     Route: 058
  7. PREDNISOLON [Suspect]
     Active Substance: PREDNISOLONE
     Indication: B-CELL LYMPHOMA
     Dosage: UNK, CYCLICAL (CYCLE1)
     Route: 048
  8. RITUXIMAB. [Suspect]
     Active Substance: RITUXIMAB
     Indication: B-CELL LYMPHOMA
     Dosage: UNK UNK, CYCLICAL (CYCLE 1)
     Route: 042
  9. PEGFILGRASTIM [Suspect]
     Active Substance: PEGFILGRASTIM
     Indication: PRODUCT USED FOR UNKNOWN INDICATION
     Dosage: UNK UNK, CYCLICAL (CYCLE 1)
     Route: 058
  10. BISOPROLOL HEMIFUMARATE [Concomitant]
     Active Substance: BISOPROLOL FUMARATE
     Indication: HYPERTENSION
     Dosage: 5 MG, QD (2.5 MG, BID)
     Route: 048
  11. EZETIMIBE/SIMVASTATIN [Concomitant]
     Active Substance: EZETIMIBE\SIMVASTATIN
     Indication: HYPERLIPIDAEMIA
     Dosage: 1 DF, QD
     Route: 048
  12. VINCRISTINE [Suspect]
     Active Substance: VINCRISTINE
     Indication: B-CELL LYMPHOMA
     Dosage: UNK UNK, CYCLICAL (CYCLE 1)
     Route: 042
  13. PEGFILGRASTIM [Suspect]
     Active Substance: PEGFILGRASTIM
     Dosage: 6 MG, QD (CYCLE 4)
     Route: 058
     Dates: start: 20140616, end: 20140616
  14. TRIMETHOPRIM SULFA [Concomitant]
     Active Substance: TRIMETHOPRIM SULFATE
     Indication: PROPHYLAXIS
     Dosage: UNK 160/80 MG (2 IN 2 WK)
     Route: 048
  15. PANTOPRAZOLE SODIUM. [Concomitant]
     Active Substance: PANTOPRAZOLE SODIUM
     Indication: PROPHYLAXIS
     Dosage: 40 MG, QD
     Route: 048
     Dates: start: 201404
  16. EPLERENONE. [Concomitant]
     Active Substance: EPLERENONE
     Indication: CARDIAC FAILURE
     Dosage: 50 MG, QD (25 MG, BID)
     Route: 048
  17. FUROSEMIDE. [Concomitant]
     Active Substance: FUROSEMIDE
     Indication: HYPERTENSION
     Dosage: 80 MG, QD (40 MG, BID)
     Route: 048
  18. CYCLOPHOSPHAMIDE. [Suspect]
     Active Substance: CYCLOPHOSPHAMIDE
     Indication: B-CELL LYMPHOMA
     Dosage: UNK UNK, CYCLICAL (CYCLE 1)
     Route: 042
  19. PANTOPRAZOLE SODIUM. [Concomitant]
     Active Substance: PANTOPRAZOLE SODIUM
     Dosage: UNK
     Route: 065
  20. RITUXIMAB. [Suspect]
     Active Substance: RITUXIMAB
     Dosage: 731 MG, Q2W (CYCLE 4)
     Route: 042
     Dates: start: 20140703, end: 20140703
  21. VINCRISTINE [Suspect]
     Active Substance: VINCRISTINE
     Dosage: 4.18 MG, Q2W  (CYCLE 4)
     Route: 042
     Dates: start: 20140613, end: 20140613
  22. CYCLOPHOSPHAMIDE. [Suspect]
     Active Substance: CYCLOPHOSPHAMIDE
     Dosage: 1463 MG, Q2W (CYCLE 4)
     Route: 042
     Dates: start: 20140613, end: 20140613
  23. RANOLAZINE. [Concomitant]
     Active Substance: RANOLAZINE
     Indication: HYPERTENSION
     Dosage: 750 MG, QD (375 MG, BID)
     Route: 048
  24. ENALAPRIL [Concomitant]
     Active Substance: ENALAPRIL
     Indication: HYPERTENSION
     Dosage: 5 MG, QD (2.5 MG, BID)
     Route: 048

REACTIONS (4)
  - Back pain [Recovered/Resolved]
  - Abdominal pain upper [Recovered/Resolved]
  - General physical health deterioration [Recovered/Resolved]
  - Arrhythmia [Unknown]

NARRATIVE: CASE EVENT DATE: 20140707
